FAERS Safety Report 4690869-8 (Version None)
Quarter: 2005Q2

REPORT INFORMATION
  Report Type: 
  Country: None (occurrence: None)
  Receive Date: 20050614
  Receipt Date: 20050614
  Transmission Date: 20051028
  Serious: Yes (Life-Threatening, Hospitalization, Disabling)
  Sender: FDA-Public Use
  Company Number: None

PATIENT
  Age: 51 Year
  Sex: Male
  Weight: 74.3899 kg

DRUGS (3)
  1. PLAVIX [Suspect]
     Indication: CEREBROVASCULAR ACCIDENT
     Dosage: PLAVIX 75 MG PO
     Route: 048
     Dates: start: 20050215
  2. ASPIRIN [Concomitant]
  3. COZAAR [Concomitant]

REACTIONS (3)
  - BACK PAIN [None]
  - MASS [None]
  - THROMBOSIS [None]
